FAERS Safety Report 9405133 (Version 3)
Quarter: 2013Q3

REPORT INFORMATION
  Report Type: Spontaneous
  Country: JP (occurrence: None)
  Receive Date: 20130708
  Receipt Date: 20130718
  Transmission Date: 20140515
  Serious: Yes (Life-Threatening)
  Sender: FDA-Public Use
  Company Number: 0239858

PATIENT
  Sex: Female

DRUGS (1)
  1. TACHOSIL [Suspect]

REACTIONS (8)
  - Hypersensitivity [None]
  - Bradycardia [None]
  - Hypoxia [None]
  - Shock [None]
  - Hypoventilation [None]
  - Haemoglobin decreased [None]
  - Haematocrit decreased [None]
  - Cardiovascular disorder [None]
